FAERS Safety Report 10158509 (Version 3)
Quarter: 2014Q3

REPORT INFORMATION
  Report Type: Spontaneous
  Country: BE (occurrence: BE)
  Receive Date: 20140507
  Receipt Date: 20140702
  Transmission Date: 20150326
  Serious: Yes (Death, Congenital Anomaly, Other)
  Sender: FDA-Public Use
  Company Number: PHHY2014BE053511

PATIENT
  Age: 52 Year
  Sex: Female

DRUGS (2)
  1. DEFEROXAMINE [Suspect]
     Active Substance: DEFEROXAMINE\DEFEROXAMINE MESYLATE
     Indication: ACUTE MYELOID LEUKAEMIA
     Dosage: 30 MG/KG PER DAY
     Route: 042
  2. DEFEROXAMINE [Suspect]
     Active Substance: DEFEROXAMINE\DEFEROXAMINE MESYLATE
     Dosage: 48 MG/KG PER DAY

REACTIONS (12)
  - Eye disorder [Unknown]
  - Blindness [Unknown]
  - Retinal toxicity [Unknown]
  - Retinal degeneration [Not Recovered/Not Resolved]
  - Maculopathy [Unknown]
  - Toxicity to various agents [Unknown]
  - Visual acuity reduced [Recovered/Resolved]
  - Retinal disorder [Recovered/Resolved]
  - Retinal detachment [Recovering/Resolving]
  - Opportunistic infection [Fatal]
  - Angiogram abnormal [Unknown]
  - Chromatopsia [Unknown]
